FAERS Safety Report 8137992-3 (Version None)
Quarter: 2012Q1

REPORT INFORMATION
  Report Type: 
  Country: None (occurrence: None)
  Receive Date: 20120215
  Receipt Date: 20120209
  Transmission Date: 20120608
  Serious: Yes (Other)
  Sender: FDA-Public Use
  Company Number: BR-PFIZER INC-2012035982

PATIENT
  Age: 75 Year
  Sex: Male

DRUGS (2)
  1. XALATAN [Suspect]
     Dosage: ONE DROP IN EACH EYE TWICE A DAY
     Dates: start: 20110101
  2. XALATAN [Suspect]
     Indication: GLAUCOMA
     Dosage: 3 UG, 1X/DAY (ONE DROP EACH EYE, ONCE A DAY)
     Route: 047
     Dates: start: 20020101, end: 20110101

REACTIONS (2)
  - HYPERTENSION [None]
  - VISUAL ACUITY REDUCED [None]
